FAERS Safety Report 10067428 (Version 1)
Quarter: 2014Q2

REPORT INFORMATION
  Report Type: Spontaneous
  Country: US (occurrence: None)
  Receive Date: 20140408
  Receipt Date: 20140408
  Transmission Date: 20141212
  Serious: Yes (Hospitalization)
  Sender: FDA-Public Use
  Company Number: None

PATIENT
  Age: 66 Year
  Sex: Male
  Weight: 80.6 kg

DRUGS (8)
  1. ALTEPLASE [Suspect]
     Indication: CEREBROVASCULAR ACCIDENT
     Route: 042
     Dates: start: 20140403, end: 20140403
  2. ANTICOAGULANT [Concomitant]
  3. ANTIPLATELET [Concomitant]
  4. ANTITHROMBOTIC [Concomitant]
  5. SALINE [Concomitant]
  6. MANNITOL [Concomitant]
  7. NICARDIPINE [Concomitant]
  8. LABETOLOL [Concomitant]

REACTIONS (2)
  - Headache [None]
  - Mental status changes [None]
